FAERS Safety Report 19483177 (Version 3)
Quarter: 2021Q3

REPORT INFORMATION
  Report Type: Spontaneous
  Country: BR (occurrence: BR)
  Receive Date: 20210701
  Receipt Date: 20210721
  Transmission Date: 20211014
  Serious: Yes (Other)
  Sender: FDA-Public Use
  Company Number: BR-IPSEN BIOPHARMACEUTICALS, INC.-2021-15954

PATIENT
  Age: 78 Year
  Sex: Male
  Weight: 68 kg

DRUGS (5)
  1. SOMATULINE AUTOGEL [Suspect]
     Active Substance: LANREOTIDE ACETATE
     Indication: NEUROENDOCRINE TUMOUR
     Route: 058
     Dates: start: 20210615
  2. SYNTHROID [Concomitant]
     Active Substance: LEVOTHYROXINE SODIUM
     Dosage: 1 TABLET PER DAY, ONGOING
     Dates: start: 2017
  3. CARDUUS MARIANUS CH1 [Concomitant]
     Indication: ENCEPHALOPATHY
     Dosage: 4 TABLETS PER DAY, ONGOING
     Route: 048
     Dates: start: 20210323
  4. CHELIDONIUM CH1 [Concomitant]
     Indication: ENCEPHALOPATHY
     Dosage: 4 TABLETS PER DAY, ONGOING
     Route: 048
     Dates: start: 20210323
  5. THUYA OCCIDENTALIS CH1 [Concomitant]
     Indication: ENCEPHALOPATHY
     Dosage: 4 TABLETS PER DAY, ONGOING
     Route: 048
     Dates: start: 20210323

REACTIONS (2)
  - Faeces soft [Recovered/Resolved]
  - Faeces pale [Recovered/Resolved]

NARRATIVE: CASE EVENT DATE: 20210624
